FAERS Safety Report 12362106 (Version 1)
Quarter: 2016Q2

REPORT INFORMATION
  Report Type: Spontaneous
  Country: US (occurrence: US)
  Receive Date: 20160512
  Receipt Date: 20160512
  Transmission Date: 20160815
  Serious: Yes (Other)
  Sender: FDA-Public Use
  Company Number: US-ALKERMES INC.-ALK-2016-001192

PATIENT
  Age: 24 Year
  Sex: Male

DRUGS (1)
  1. VIVITROL [Suspect]
     Active Substance: NALTREXONE
     Indication: DRUG DEPENDENCE
     Dosage: 380 MG, QMO
     Route: 030
     Dates: start: 20160401

REACTIONS (4)
  - Haematemesis [Unknown]
  - Headache [Unknown]
  - Vomiting [Unknown]
  - Alcohol use [Unknown]

NARRATIVE: CASE EVENT DATE: 201604
